FAERS Safety Report 4478594-X (Version None)
Quarter: 2004Q4

REPORT INFORMATION
  Report Type: 
  Country: None (occurrence: None)
  Receive Date: 20041019
  Receipt Date: 20041012
  Transmission Date: 20050328
  Serious: Yes (Disabling, Other)
  Sender: FDA-Public Use
  Company Number: US-MERCK-0410USA01921

PATIENT

DRUGS (1)
  1. VIOXX [Suspect]
     Route: 048

REACTIONS (4)
  - ADVERSE EVENT [None]
  - CEREBROVASCULAR ACCIDENT [None]
  - HEART RATE IRREGULAR [None]
  - TRANSIENT ISCHAEMIC ATTACK [None]
